FAERS Safety Report 16159322 (Version 2)
Quarter: 2019Q2

REPORT INFORMATION
  Report Type: Spontaneous
  Country: US (occurrence: US)
  Receive Date: 20190404
  Receipt Date: 20190614
  Transmission Date: 20190711
  Serious: No
  Sender: FDA-Public Use
  Company Number: US-JNJFOC-20190320993

PATIENT
  Sex: Male

DRUGS (2)
  1. MENS ROGAINE EXTRA STRENGTH UNSCENTED [Suspect]
     Active Substance: MINOXIDIL
     Route: 061
  2. MENS ROGAINE EXTRA STRENGTH UNSCENTED [Suspect]
     Active Substance: MINOXIDIL
     Indication: PRODUCT USED FOR UNKNOWN INDICATION
     Dosage: 1/2 CAPFUL
     Route: 061

REACTIONS (5)
  - Application site erythema [Recovered/Resolved]
  - Secretion discharge [Recovering/Resolving]
  - Hair texture abnormal [Recovered/Resolved]
  - Application site dryness [Recovering/Resolving]
  - Application site irritation [Recovered/Resolved]
